FAERS Safety Report 4352011-2 (Version None)
Quarter: 2004Q2

REPORT INFORMATION
  Report Type: 
  Country: None (occurrence: None)
  Receive Date: 20040428
  Receipt Date: 20031103
  Transmission Date: 20050107
  Serious: Yes (Hospitalization)
  Sender: FDA-Public Use
  Company Number: US-SHR-03-013018

PATIENT
  Sex: Female

DRUGS (4)
  1. LEUKINE [Suspect]
     Indication: CHEMOTHERAPY
     Dosage: 500 UG, 5 CYCLES X 5D, SUBCUTANEOUS
     Route: 058
     Dates: start: 20030101, end: 20030809
  2. LEUKINE [Suspect]
     Indication: NEUTROPENIA
     Dosage: 500 UG, 5 CYCLES X 5D, SUBCUTANEOUS
     Route: 058
     Dates: start: 20030101, end: 20030809
  3. ADRIAMYCIN PFS [Concomitant]
  4. CYTOXAN [Concomitant]

REACTIONS (9)
  - BACK PAIN [None]
  - CULTURE URINE POSITIVE [None]
  - DIZZINESS [None]
  - FATIGUE [None]
  - HYPERHIDROSIS [None]
  - INFLUENZA LIKE ILLNESS [None]
  - PALPITATIONS [None]
  - VERTIGO [None]
  - WHITE BLOOD CELL COUNT DECREASED [None]
